FAERS Safety Report 7754644-X (Version None)
Quarter: 2011Q3

REPORT INFORMATION
  Report Type: 
  Country: None (occurrence: None)
  Receive Date: 20110915
  Receipt Date: 20110825
  Transmission Date: 20111222
  Serious: No
  Sender: FDA-Public Use
  Company Number: US-ALLERGAN-1111414US

PATIENT
  Age: 77 Year
  Sex: Female

DRUGS (2)
  1. LUMIGAN [Suspect]
     Indication: INTRAOCULAR PRESSURE INCREASED
     Dosage: 1 GTT, DAILY
     Route: 047
     Dates: start: 20110601
  2. GENTEAL                            /00445101/ [Concomitant]
     Indication: DRY EYE
     Dosage: UNK
     Route: 047

REACTIONS (3)
  - SINUSITIS [None]
  - EYE PRURITUS [None]
  - DIPLOPIA [None]
